FAERS Safety Report 7334718-8 (Version None)
Quarter: 2011Q1

REPORT INFORMATION
  Report Type: 
  Country: None (occurrence: None)
  Receive Date: 20110307
  Receipt Date: 20110221
  Transmission Date: 20110831
  Serious: Yes (Other)
  Sender: FDA-Public Use
  Company Number: PHHY2011AT06749

PATIENT
  Sex: Female
  Weight: 68 kg

DRUGS (1)
  1. TASIGNA [Suspect]
     Dosage: 800 MG DAILY
     Route: 048
     Dates: start: 20100108

REACTIONS (6)
  - NEUROLOGICAL SYMPTOM [None]
  - HEADACHE [None]
  - VERTIGO [None]
  - ANGIOPATHY [None]
  - VISUAL ACUITY TESTS ABNORMAL [None]
  - CEREBRAL DISORDER [None]
